FAERS Safety Report 8181664-6 (Version None)
Quarter: 2012Q1

REPORT INFORMATION
  Report Type: 
  Country: None (occurrence: None)
  Receive Date: 20120302
  Receipt Date: 20120216
  Transmission Date: 20120608
  Serious: Yes (Death, Life-Threatening, Hospitalization, Other)
  Sender: FDA-Public Use
  Company Number: JP-TEVA-2011003859

PATIENT
  Sex: Male
  Weight: 73 kg

DRUGS (10)
  1. AMOXICILLIN AND CLAVULANATE POTASSIUM [Concomitant]
     Dates: start: 20110214
  2. RED BLOOD CELLS, CONCENTRATED [Concomitant]
     Dates: start: 20110607, end: 20110624
  3. ALLOPURINOL [Concomitant]
     Dates: start: 20110214, end: 20110605
  4. BETAMETHASONE [Concomitant]
     Dates: end: 20110622
  5. LANSOPRAZOLE [Concomitant]
     Dates: start: 20110602, end: 20110627
  6. CIPROFLOXACIN HYDROCHLORIDE [Concomitant]
     Dates: start: 20110214
  7. TREANDA [Suspect]
     Indication: EXTRANODAL MARGINAL ZONE B-CELL LYMPHOMA (MALT TYPE)
     Route: 042
     Dates: start: 20110214, end: 20110604
  8. BACTRIM [Concomitant]
     Dates: end: 20110622
  9. DOMPERIDONE [Concomitant]
     Dates: start: 20110214
  10. PLATELETS, CONCENTRATED [Concomitant]
     Dates: start: 20110620, end: 20110702

REACTIONS (15)
  - PLATELET COUNT DECREASED [None]
  - DEHYDRATION [None]
  - BLOOD LACTATE DEHYDROGENASE INCREASED [None]
  - PANCYTOPENIA [None]
  - BLOOD CALCIUM INCREASED [None]
  - DYSPNOEA [None]
  - BLOOD URIC ACID INCREASED [None]
  - DECREASED APPETITE [None]
  - ALANINE AMINOTRANSFERASE INCREASED [None]
  - ASPARTATE AMINOTRANSFERASE INCREASED [None]
  - LUNG INFECTION [None]
  - PNEUMONIA CYTOMEGALOVIRAL [None]
  - ANGIOPATHY [None]
  - WHITE BLOOD CELL COUNT DECREASED [None]
  - PYREXIA [None]
